FAERS Safety Report 4755479-2 (Version None)
Quarter: 2005Q3

REPORT INFORMATION
  Report Type: 
  Country: None (occurrence: None)
  Receive Date: 20050829
  Receipt Date: 20050811
  Transmission Date: 20060218
  Serious: Yes (Hospitalization)
  Sender: FDA-Public Use
  Company Number: 2005S1007611

PATIENT
  Age: 75 Year
  Sex: Male
  Weight: 81.7382 kg

DRUGS (21)
  1. NESIRITIDE (0.01 MCG/KG/MIN) [Suspect]
     Indication: CARDIAC FAILURE CONGESTIVE
     Dosage: 0.01 MCG/KG/MIN; IV
     Route: 042
     Dates: start: 20041014, end: 20041228
  2. COLCHICINE (0.6 MG) [Suspect]
     Indication: GOUT
     Dosage: 0.6 MG; QD; PO
     Route: 048
     Dates: start: 20041014, end: 20041228
  3. ALLOPURINOL TABLETS, USP (100 MG) [Suspect]
     Dosage: 100 MG; QD; PO
     Route: 048
     Dates: start: 20041014, end: 20051228
  4. WARFARIN SODIUM [Concomitant]
  5. HYDRALAZINE [Concomitant]
  6. LEVOTHYROXINE SODIUM [Concomitant]
  7. BISOPROLOL [Concomitant]
  8. PANTOPRAZOLE [Concomitant]
  9. VALSARTAN [Concomitant]
  10. PAROXETINE HYDROCHLORIDE [Concomitant]
  11. AMLODIPINE BESILATE [Concomitant]
  12. HYDROCODONE [Concomitant]
  13. METOLAZONE [Concomitant]
  14. CALCIUM ACETATE [Concomitant]
  15. PARACETAMOL/HYDROCODONE BITARTRATE [Concomitant]
  16. EPOETIN ALFA [Concomitant]
  17. FLUOROURACIL [Concomitant]
  18. MUPIROCIN [Concomitant]
  19. PANTOPRAZOLE [Concomitant]
  20. PAROXETINE [Concomitant]
  21. SULFA-RETARD (EYE DROPS) [Concomitant]

REACTIONS (27)
  - ACTIVATED PARTIAL THROMBOPLASTIN TIME PROLONGED [None]
  - AORTIC ATHEROSCLEROSIS [None]
  - ARRHYTHMIA [None]
  - ARTHRALGIA [None]
  - BLOOD PRESSURE SYSTOLIC INCREASED [None]
  - BLOOD URIC ACID INCREASED [None]
  - BODY TEMPERATURE DECREASED [None]
  - BRAIN NATRIURETIC PEPTIDE INCREASED [None]
  - CARDIAC FAILURE CONGESTIVE [None]
  - CARDIAC MURMUR [None]
  - CELLULITIS [None]
  - CONDITION AGGRAVATED [None]
  - CREPITATIONS [None]
  - CYANOSIS [None]
  - FAT EMBOLISM [None]
  - JOINT SWELLING [None]
  - LUNG CREPITATION [None]
  - PERIPHERAL VASCULAR DISORDER [None]
  - POLYURIA [None]
  - POOR PERIPHERAL CIRCULATION [None]
  - PROTHROMBIN TIME PROLONGED [None]
  - RENAL DISORDER [None]
  - RENAL FAILURE ACUTE [None]
  - RENAL TUBULAR NECROSIS [None]
  - RESPIRATORY RATE INCREASED [None]
  - SKIN ULCER [None]
  - VENOUS STASIS [None]
